FAERS Safety Report 4354666-5 (Version None)
Quarter: 2004Q2

REPORT INFORMATION
  Report Type: 
  Country: None (occurrence: None)
  Receive Date: 20040503
  Receipt Date: 20040419
  Transmission Date: 20050107
  Serious: Yes (Other)
  Sender: FDA-Public Use
  Company Number: HQWYE569822APR04

PATIENT
  Sex: Female

DRUGS (1)
  1. PREMPRO [Suspect]
     Indication: DRUG USE FOR UNKNOWN INDICATION
     Dosage: UNKNOWN; ORAL
     Route: 048
     Dates: start: 19980503, end: 20010601

REACTIONS (4)
  - BREAST CANCER [None]
  - FAT NECROSIS OF BREAST [None]
  - METASTASES TO LYMPH NODES [None]
  - VENOUS THROMBOSIS LIMB [None]
